FAERS Safety Report 11155684 (Version 2)
Quarter: 2015Q3

REPORT INFORMATION
  Report Type: Spontaneous
  Country: FR (occurrence: FR)
  Receive Date: 20150602
  Receipt Date: 20150702
  Transmission Date: 20151125
  Serious: Yes (Other)
  Sender: FDA-Public Use
  Company Number: FR-ASTRAZENECA-2015SE53550

PATIENT
  Age: 534 Month
  Sex: Female

DRUGS (7)
  1. XEROQUEL [Suspect]
     Active Substance: QUETIAPINE FUMARATE
     Indication: BIPOLAR DISORDER
     Route: 048
     Dates: start: 201211, end: 201309
  2. TERALITHE [Concomitant]
     Active Substance: LITHIUM CARBONATE
     Indication: BIPOLAR DISORDER
  3. XEROQUEL [Suspect]
     Active Substance: QUETIAPINE FUMARATE
     Indication: BIPOLAR DISORDER
     Route: 048
     Dates: start: 201309
  4. DEPAMIDE [Concomitant]
     Active Substance: VALPROMIDE
  5. MOGADON [Concomitant]
     Active Substance: NITRAZEPAM
  6. LOXAPAC [Concomitant]
     Active Substance: LOXAPINE SUCCINATE
     Dosage: OCCASIONALLY
  7. XEROQUEL [Suspect]
     Active Substance: QUETIAPINE FUMARATE
     Indication: BIPOLAR DISORDER
     Route: 048
     Dates: start: 201209

REACTIONS (3)
  - Off label use [Not Recovered/Not Resolved]
  - Cataract [Unknown]
  - Visual acuity reduced [Not Recovered/Not Resolved]

NARRATIVE: CASE EVENT DATE: 201309
